FAERS Safety Report 14271450 (Version 1)
Quarter: 2017Q4

REPORT INFORMATION
  Report Type: Spontaneous
  Country: US (occurrence: US)
  Receive Date: 20171211
  Receipt Date: 20171211
  Transmission Date: 20180321
  Serious: Yes (Death)
  Sender: FDA-Public Use
  Company Number: US-PERRIGO-17US031082

PATIENT
  Age: 77 Year
  Sex: Female

DRUGS (10)
  1. ALLERGY [Suspect]
     Active Substance: UNSPECIFIED INGREDIENT
     Indication: THERAPEUTIC RESPONSE UNEXPECTED
     Dosage: UNK
     Route: 048
  2. FUROSEMIDE. [Suspect]
     Active Substance: FUROSEMIDE
     Indication: THERAPEUTIC RESPONSE UNEXPECTED
     Dosage: UNK
     Route: 048
  3. IBUPROFEN. [Suspect]
     Active Substance: IBUPROFEN
     Indication: THERAPEUTIC RESPONSE UNEXPECTED
     Dosage: UNK
     Route: 048
  4. OMEPRAZOLE. [Suspect]
     Active Substance: OMEPRAZOLE
     Indication: THERAPEUTIC RESPONSE UNEXPECTED
     Dosage: UNK
     Route: 048
  5. POTASSIUM CHLORIDE. [Suspect]
     Active Substance: POTASSIUM CHLORIDE
     Indication: THERAPEUTIC RESPONSE UNEXPECTED
     Dosage: UNK
     Route: 048
  6. PREGABALIN. [Suspect]
     Active Substance: PREGABALIN
     Indication: THERAPEUTIC RESPONSE UNEXPECTED
     Dosage: UNK
     Route: 048
  7. CINNAMALDEHYDE [Suspect]
     Active Substance: CINNAMALDEHYDE
     Indication: THERAPEUTIC RESPONSE UNEXPECTED
     Dosage: UNK
     Route: 048
  8. GLIMEPIRIDE. [Suspect]
     Active Substance: GLIMEPIRIDE
     Indication: THERAPEUTIC RESPONSE UNEXPECTED
     Dosage: UNK
     Route: 048
  9. METFORMIN [Suspect]
     Active Substance: METFORMIN HYDROCHLORIDE
     Indication: THERAPEUTIC RESPONSE UNEXPECTED
     Dosage: UNK
     Route: 048
  10. PAROXETINE. [Suspect]
     Active Substance: PAROXETINE
     Indication: THERAPEUTIC RESPONSE UNEXPECTED
     Dosage: UNK
     Route: 048

REACTIONS (2)
  - Death [Fatal]
  - Intentional product use issue [None]
